FAERS Safety Report 4665560-4 (Version None)
Quarter: 2005Q2

REPORT INFORMATION
  Report Type: 
  Country: None (occurrence: None)
  Receive Date: 20050519
  Receipt Date: 20040423
  Transmission Date: 20051028
  Serious: No
  Sender: FDA-Public Use
  Company Number: US-BRISTOL-MYERS SQUIBB COMPANY-12570610

PATIENT
  Age: 67 Year
  Sex: Male
  Weight: 91 kg

DRUGS (2)
  1. MONOPRIL [Suspect]
     Indication: HYPERTENSION
     Dosage: BEGAN 20 MG DAILY APPROX 4 YEARS AGO, DOSE INCREASED TO 40 MG SOON AFTER.
     Route: 048
  2. POLICOSANOL [Concomitant]
     Dosage: TAKING FOR A FEW YEARS

REACTIONS (2)
  - ERECTILE DYSFUNCTION [None]
  - LIBIDO DECREASED [None]
